FAERS Safety Report 9254543 (Version 1)
Quarter: 2013Q2

REPORT INFORMATION
  Report Type: Spontaneous
  Country: US (occurrence: US)
  Receive Date: 20130425
  Receipt Date: 20130425
  Transmission Date: 20140414
  Serious: No
  Sender: FDA-Public Use
  Company Number: US-GLAXOSMITHKLINE-A1016541A

PATIENT
  Age: 62 Year
  Sex: Male

DRUGS (4)
  1. HORIZANT [Suspect]
     Indication: RESTLESS LEGS SYNDROME
     Dosage: 600MG TWICE PER DAY
     Route: 048
  2. ROPINIROLE [Concomitant]
  3. LUNESTA [Concomitant]
  4. NEUPRO [Concomitant]
     Route: 062

REACTIONS (1)
  - Drug ineffective [Not Recovered/Not Resolved]
